FAERS Safety Report 5593981-4 (Version None)
Quarter: 2008Q1

REPORT INFORMATION
  Report Type: 
  Country: None (occurrence: None)
  Receive Date: 20080116
  Receipt Date: 20080114
  Transmission Date: 20080703
  Serious: Yes (Disabling)
  Sender: FDA-Public Use
  Company Number: US-GENENTECH-248960

PATIENT
  Sex: Female
  Weight: 56 kg

DRUGS (4)
  1. AVASTIN [Suspect]
     Indication: LUNG CANCER METASTATIC
     Dosage: 15 MG/KG, Q3W
     Route: 042
  2. NAVELBINE [Concomitant]
     Indication: DRUG USE FOR UNKNOWN INDICATION
     Dosage: 25 MG/M2, 1/WEEK
  3. ALOXI [Concomitant]
     Indication: DRUG USE FOR UNKNOWN INDICATION
     Dosage: 0.25 UNK, 1/WEEK
  4. LOVENOX [Concomitant]
     Indication: DRUG USE FOR UNKNOWN INDICATION
     Dosage: 80 UNK, QD

REACTIONS (1)
  - RETINAL ARTERY THROMBOSIS [None]
